FAERS Safety Report 8347464-9 (Version None)
Quarter: 2012Q2

REPORT INFORMATION
  Report Type: 
  Country: None (occurrence: None)
  Receive Date: 20120509
  Receipt Date: 20120307
  Transmission Date: 20120825
  Serious: No
  Sender: FDA-Public Use
  Company Number: US-GLAXOSMITHKLINE-A0968981A

PATIENT
  Age: 34 Year
  Sex: Female

DRUGS (5)
  1. PANOXYL 4 ACNE CREAMY WASH [Concomitant]
  2. ACZONE [Concomitant]
  3. UNKNOWN MEDICATION [Concomitant]
  4. HYDROQUINONE CREAM [Concomitant]
  5. VELTIN [Suspect]
     Indication: ACNE
     Dosage: 1APP AT NIGHT
     Route: 061
     Dates: start: 20110610

REACTIONS (2)
  - SKIN EXFOLIATION [None]
  - SKIN CHAPPED [None]
